FAERS Safety Report 18698854 (Version 1)
Quarter: 2021Q1

REPORT INFORMATION
  Report Type: Spontaneous
  Country: DE (occurrence: DE)
  Receive Date: 20210105
  Receipt Date: 20210105
  Transmission Date: 20210419
  Serious: Yes (Other)
  Sender: FDA-Public Use
  Company Number: DE-BIOVITRUM-2020DE8096

PATIENT
  Age: 19 Month
  Sex: Female
  Weight: 11 kg

DRUGS (1)
  1. SYNAGIS [Suspect]
     Active Substance: PALIVIZUMAB
     Indication: SPINAL MUSCULAR ATROPHY
     Route: 050
     Dates: start: 20201109

REACTIONS (2)
  - Abscess [Recovered/Resolved with Sequelae]
  - Application site scar [Recovered/Resolved with Sequelae]

NARRATIVE: CASE EVENT DATE: 20201117
